FAERS Safety Report 18200632 (Version 2)
Quarter: 2020Q3

REPORT INFORMATION
  Report Type: Spontaneous
  Country: CZ (occurrence: CZ)
  Receive Date: 20200827
  Receipt Date: 20200904
  Transmission Date: 20201103
  Serious: Yes (Hospitalization)
  Sender: FDA-Public Use
  Company Number: CZ-ROCHE-2664094

PATIENT
  Age: 80 Year
  Sex: Female

DRUGS (1)
  1. TECENTRIQ [Suspect]
     Active Substance: ATEZOLIZUMAB
     Indication: LUNG ADENOCARCINOMA
     Route: 042
     Dates: start: 20200617

REACTIONS (11)
  - Chronic obstructive pulmonary disease [Unknown]
  - Ventricular extrasystoles [Unknown]
  - Atrial fibrillation [Unknown]
  - Duodenogastric reflux [Unknown]
  - Bundle branch block left [Unknown]
  - Gastric disorder [Unknown]
  - Acute kidney injury [Unknown]
  - Hypokalaemia [Unknown]
  - Deep vein thrombosis [Unknown]
  - Fungal oesophagitis [Unknown]
  - Melaena [Unknown]

NARRATIVE: CASE EVENT DATE: 20200705
